FAERS Safety Report 16783346 (Version 2)
Quarter: 2019Q4

REPORT INFORMATION
  Report Type: Report from Study
  Country: JP (occurrence: JP)
  Receive Date: 20190907
  Receipt Date: 20191111
  Transmission Date: 20200122
  Serious: Yes (Hospitalization)
  Sender: FDA-Public Use
  Company Number: JP-CELLTRION INC.-2019JP024333

PATIENT

DRUGS (10)
  1. LAC-B GRANULAR POWDER N [Concomitant]
     Dosage: 1 GRAM, QD
     Route: 048
  2. PENTASA [Concomitant]
     Active Substance: MESALAMINE
     Dosage: 1000 MILLIGRAM, QD
     Route: 048
  3. INFLIXIMAB BS FOR I.V. INFUSION100 MG (CTH) [Suspect]
     Active Substance: INFLIXIMAB
     Dosage: 262.0 MG
     Route: 041
     Dates: start: 20181206, end: 20181206
  4. PENTASA [Concomitant]
     Active Substance: MESALAMINE
     Dosage: 2000 MILLIGRAM, QD
     Route: 048
  5. INFLIXIMAB BS FOR I.V. INFUSION100 MG (CTH) [Suspect]
     Active Substance: INFLIXIMAB
     Dosage: 260.5 MG
     Route: 041
     Dates: start: 20181011, end: 20181011
  6. INFLIXIMAB BS FOR I.V. INFUSION100 MG (CTH) [Suspect]
     Active Substance: INFLIXIMAB
     Dosage: 247.5 MG
     Route: 041
     Dates: start: 20190207, end: 20190207
  7. AZANIN [Concomitant]
     Active Substance: AZATHIOPRINE
     Dosage: 50 MILLIGRAM, QD
     Route: 048
  8. INFLIXIMAB BS FOR I.V. INFUSION100 MG (CTH) [Suspect]
     Active Substance: INFLIXIMAB
     Indication: CROHN^S DISEASE
     Dosage: 254.5 MG
     Route: 041
     Dates: start: 20180823, end: 20180823
  9. ACETAMINOPHEN. [Concomitant]
     Active Substance: ACETAMINOPHEN
     Dosage: 400 MG, BID
     Route: 048
  10. GASTER [Concomitant]
     Active Substance: FAMOTIDINE
     Dosage: 20 MILLIGRAM, QD
     Route: 048

REACTIONS (1)
  - Ileus [Recovered/Resolved]

NARRATIVE: CASE EVENT DATE: 20181214
